FAERS Safety Report 9116852 (Version 1)
Quarter: 2013Q1

REPORT INFORMATION
  Report Type: Spontaneous
  Country: CA (occurrence: CA)
  Receive Date: 20130225
  Receipt Date: 20130225
  Transmission Date: 20140127
  Serious: Yes (Other)
  Sender: FDA-Public Use
  Company Number: PHHY2013CA015145

PATIENT
  Age: 57 Year
  Sex: Female

DRUGS (6)
  1. MYFORTIC [Suspect]
     Dosage: 250 MG, BID
     Route: 048
  2. TACROLIMUS [Suspect]
     Dosage: 2 MG, 1 EVERY DAY
  3. PREDNISONE [Suspect]
     Dosage: 5 MG, BID
  4. HUMIRA [Suspect]
     Dosage: 40 MG, 1 EVERY 2 WEEKS
     Route: 058
  5. REMICADE [Suspect]
     Dosage: 50 MG/KG, 1 EVERY DAY
  6. REMICADE [Suspect]
     Dosage: 50 MG/KG, POWDER FOR SOLUTION INTRAVENOUS

REACTIONS (1)
  - Colorectal cancer [Unknown]
